FAERS Safety Report 4865503-4 (Version None)
Quarter: 2005Q4

REPORT INFORMATION
  Report Type: 
  Country: None (occurrence: None)
  Receive Date: 20051223
  Receipt Date: 20050525
  Transmission Date: 20060501
  Serious: Yes (Hospitalization)
  Sender: FDA-Public Use
  Company Number: US-ROCHE-406017

PATIENT
  Age: 49 Year
  Sex: Female

DRUGS (7)
  1. PEGASYS [Suspect]
     Dosage: STRENGTH REPORTED AS 180 MCG/0.5 ML.
     Route: 058
     Dates: start: 20050517
  2. PEGASYS [Suspect]
     Route: 058
     Dates: start: 20050614
  3. PEGASYS [Suspect]
     Route: 058
     Dates: end: 20051004
  4. PEGASYS [Suspect]
     Route: 058
     Dates: start: 20051114
  5. COPEGUS [Suspect]
     Route: 048
     Dates: start: 20050517
  6. COPEGUS [Suspect]
     Route: 048
     Dates: end: 20051004
  7. RIBASPHERE [Concomitant]
     Indication: HEPATITIS C
     Route: 048
     Dates: start: 20051114

REACTIONS (14)
  - ABDOMINAL PAIN [None]
  - CHILLS [None]
  - CHOLECYSTITIS [None]
  - DIZZINESS [None]
  - FATIGUE [None]
  - HAEMOGLOBIN DECREASED [None]
  - NAUSEA [None]
  - NEUTROPHIL COUNT DECREASED [None]
  - PRURITUS [None]
  - PYREXIA [None]
  - RASH [None]
  - RED BLOOD CELL COUNT DECREASED [None]
  - URINARY TRACT INFECTION [None]
  - WHITE BLOOD CELL COUNT DECREASED [None]
